FAERS Safety Report 12595426 (Version 1)
Quarter: 2016Q3

REPORT INFORMATION
  Report Type: Spontaneous
  Country: US (occurrence: US)
  Receive Date: 20160726
  Receipt Date: 20160726
  Transmission Date: 20161109
  Serious: No
  Sender: FDA-Public Use
  Company Number: US-ENDO PHARMACEUTICALS INC.-2016-001151

PATIENT
  Age: 69 Year
  Sex: Female
  Weight: 61.29 kg

DRUGS (2)
  1. LISINOPRIL TABLETS 2.5MG [Suspect]
     Active Substance: LISINOPRIL
     Indication: HYPERTENSION
     Route: 048
     Dates: start: 2014, end: 201602
  2. LISINOPRIL TABLETS 2.5MG [Suspect]
     Active Substance: LISINOPRIL
     Route: 048
     Dates: start: 20160209, end: 20160209

REACTIONS (5)
  - Heart rate increased [Not Recovered/Not Resolved]
  - Drug ineffective [Not Recovered/Not Resolved]
  - Intentional product use issue [Recovered/Resolved]
  - Chromaturia [Recovered/Resolved]
  - Abdominal pain upper [Recovered/Resolved]

NARRATIVE: CASE EVENT DATE: 201602
